FAERS Safety Report 5786120-8 (Version None)
Quarter: 2008Q2

REPORT INFORMATION
  Report Type: 
  Country: None (occurrence: None)
  Receive Date: 20080624
  Receipt Date: 20080528
  Transmission Date: 20081010
  Serious: No
  Sender: FDA-Public Use
  Company Number: US-BAUSCH-2008BL002366

PATIENT
  Age: 89 Year
  Sex: Female

DRUGS (1)
  1. ALBUTEROL SULFATE [Suspect]
     Indication: ASTHMA
     Route: 049
     Dates: start: 20080502, end: 20080501

REACTIONS (3)
  - DRUG INEFFECTIVE [None]
  - FATIGUE [None]
  - MEDICATION ERROR [None]
